FAERS Safety Report 26058726 (Version 1)
Quarter: 2025Q4

REPORT INFORMATION
  Report Type: Report from Study
  Country: US (occurrence: US)
  Receive Date: 20251118
  Receipt Date: 20251118
  Transmission Date: 20260117
  Serious: Yes (Hospitalization)
  Sender: ABBVIE
  Company Number: US-ABBVIE-6550400

PATIENT
  Age: 66 Year
  Sex: Male

DRUGS (1)
  1. VYALEV [Suspect]
     Active Substance: FOSCARBIDOPA\FOSLEVODOPA
     Indication: Parkinson^s disease
     Route: 058
     Dates: start: 20250901, end: 20250910

REACTIONS (6)
  - Hypotension [Unknown]
  - Device dislocation [Unknown]
  - Drug ineffective [Unknown]
  - Movement disorder [Unknown]
  - Dyspnoea [Unknown]
  - Gait inability [Unknown]

NARRATIVE: CASE EVENT DATE: 20250901
